FAERS Safety Report 5495499-6 (Version None)
Quarter: 2007Q4

REPORT INFORMATION
  Report Type: 
  Country: None (occurrence: None)
  Receive Date: 20071023
  Receipt Date: 20070917
  Transmission Date: 20080405
  Serious: Yes (Congenital Anomaly)
  Sender: FDA-Public Use
  Company Number: 07-002048

PATIENT
  Sex: Male

DRUGS (1)
  1. DOVONEX [Suspect]
     Indication: PSORIASIS
     Dosage: TRANSPLACENTAL
     Route: 064
     Dates: end: 20060801

REACTIONS (3)
  - CONGENITAL ANOMALY [None]
  - DRUG EXPOSURE DURING PREGNANCY [None]
  - HAND DEFORMITY [None]
